FAERS Safety Report 18636259 (Version 1)
Quarter: 2020Q4

REPORT INFORMATION
  Report Type: Report from Study
  Country: US (occurrence: US)
  Receive Date: 20201218
  Receipt Date: 20201218
  Transmission Date: 20210114
  Serious: No
  Sender: FDA-Public Use
  Company Number: US-REGENERON PHARMACEUTICALS, INC.-2020-35984

PATIENT

DRUGS (3)
  1. EYLEA [Suspect]
     Active Substance: AFLIBERCEPT
     Indication: NEOVASCULAR AGE-RELATED MACULAR DEGENERATION
     Dosage: IN LEFT EYE
     Route: 031
     Dates: start: 20200414, end: 20200414
  2. AVASTIN [Suspect]
     Active Substance: BEVACIZUMAB
     Indication: PRODUCT USED FOR UNKNOWN INDICATION
     Dosage: RIGHT EYE
     Route: 031
     Dates: start: 20200414, end: 20200414
  3. EYLEA [Suspect]
     Active Substance: AFLIBERCEPT
     Dosage: IN LEFT EYE
     Route: 031
     Dates: start: 20200620, end: 20200620

REACTIONS (1)
  - Metamorphopsia [Unknown]
